FAERS Safety Report 4690059-9 (Version None)
Quarter: 2005Q2

REPORT INFORMATION
  Report Type: 
  Country: None (occurrence: None)
  Receive Date: 20050614
  Receipt Date: 20050531
  Transmission Date: 20051028
  Serious: Yes (Hospitalization, Other)
  Sender: FDA-Public Use
  Company Number: 2005083281

PATIENT
  Age: 24 Year
  Sex: Female

DRUGS (1)
  1. DEPO-PROVERA [Suspect]
     Indication: ILL-DEFINED DISORDER

REACTIONS (9)
  - BACK PAIN [None]
  - CERVICAL DYSPLASIA [None]
  - DEPRESSION [None]
  - GOITRE [None]
  - HIRSUTISM [None]
  - HYPERHIDROSIS [None]
  - NIGHT SWEATS [None]
  - VISUAL DISTURBANCE [None]
  - WEIGHT INCREASED [None]
